FAERS Safety Report 9179324 (Version 1)
Quarter: 2012Q4

REPORT INFORMATION
  Report Type: 
  Country: US (occurrence: US)
  Receive Date: 20121029
  Receipt Date: 20121029
  Transmission Date: 20130627
  Serious: Yes (Other)
  Sender: FDA-Public Use
  Company Number: US-ROCHE-788251

PATIENT
  Age: 43 None
  Sex: Male
  Weight: 99.88 kg

DRUGS (2)
  1. ACCUTANE [Suspect]
     Indication: ACNE
     Route: 065
     Dates: start: 1984, end: 1985
  2. ACCUTANE [Suspect]
     Route: 065
     Dates: start: 1985, end: 1986

REACTIONS (4)
  - Inflammatory bowel disease [Unknown]
  - Colitis ulcerative [Unknown]
  - Emotional distress [Not Recovered/Not Resolved]
  - Gastrointestinal haemorrhage [Unknown]
